FAERS Safety Report 9301373 (Version 6)
Quarter: 2013Q3

REPORT INFORMATION
  Report Type: Report from Study
  Country: US (occurrence: US)
  Receive Date: 20130521
  Receipt Date: 20130730
  Transmission Date: 20140515
  Serious: Yes (Hospitalization)
  Sender: FDA-Public Use
  Company Number: US-ROCHE-1224766

PATIENT
  Age: 78 Year
  Sex: Male

DRUGS (34)
  1. VEMURAFENIB [Suspect]
     Indication: THYROID CANCER
     Route: 048
     Dates: start: 20120305, end: 20121014
  2. VEMURAFENIB [Suspect]
     Route: 048
     Dates: start: 20121026, end: 20130512
  3. UREA CREAM [Concomitant]
     Route: 061
     Dates: start: 20120723
  4. LIQUID NITROGEN [Concomitant]
     Indication: SKIN PAPILLOMA
     Route: 065
     Dates: start: 20120402, end: 20120402
  5. LIQUID NITROGEN [Concomitant]
     Route: 065
     Dates: start: 20120326, end: 20120326
  6. LIQUID NITROGEN [Concomitant]
     Route: 065
     Dates: start: 20120423, end: 20120423
  7. LIQUID NITROGEN [Concomitant]
     Route: 065
     Dates: start: 20120618, end: 20120618
  8. LIQUID NITROGEN [Concomitant]
     Route: 065
     Dates: start: 20120723, end: 20120723
  9. LIQUID NITROGEN [Concomitant]
     Route: 065
     Dates: start: 20120815, end: 20120815
  10. LIQUID NITROGEN [Concomitant]
     Route: 065
     Dates: start: 20121015, end: 20121015
  11. LIQUID NITROGEN [Concomitant]
     Route: 065
     Dates: start: 20130204, end: 20130204
  12. LIQUID NITROGEN [Concomitant]
     Route: 065
     Dates: start: 20121210, end: 20121210
  13. ATENOLOL [Concomitant]
     Indication: HYPERTENSION
     Dosage: 50/ 25 MG
     Route: 048
  14. ATORVASTATIN [Concomitant]
     Indication: BLOOD CHOLESTEROL INCREASED
     Route: 048
     Dates: end: 20120302
  15. SYNTHROID [Concomitant]
     Indication: HYPOTHYROIDISM
     Route: 048
     Dates: start: 201110, end: 20121002
  16. TRIAMCINOLONE [Concomitant]
     Route: 061
     Dates: start: 20120326
  17. CEPHALEXIN [Concomitant]
     Indication: UPPER RESPIRATORY TRACT INFECTION
     Route: 048
     Dates: start: 20120319, end: 20120326
  18. CEPHALEXIN [Concomitant]
     Route: 048
     Dates: start: 20120423, end: 20120502
  19. CEPHALEXIN [Concomitant]
     Route: 048
     Dates: start: 20120522, end: 20120815
  20. CEPHALEXIN [Concomitant]
     Route: 048
     Dates: start: 20120723, end: 20120815
  21. CEPHALEXIN [Concomitant]
     Route: 048
     Dates: start: 20121015, end: 20121021
  22. IMIQUIMOD [Concomitant]
     Indication: SKIN PAPILLOMA
     Route: 061
     Dates: start: 20120423, end: 20121210
  23. CLINDAMYCIN [Concomitant]
     Route: 061
     Dates: start: 20120618, end: 20121210
  24. DESONIDE CREAM [Concomitant]
     Indication: SKIN INFECTION
     Route: 061
     Dates: start: 20120815
  25. ZOLPIDEM [Concomitant]
     Indication: INSOMNIA
     Route: 048
     Dates: start: 20120723
  26. ECONAZOLE [Concomitant]
     Indication: SKIN INFECTION
     Route: 061
     Dates: start: 20120914
  27. OMEPRAZOL [Concomitant]
     Indication: NAUSEA
     Route: 048
     Dates: start: 20120817, end: 20121026
  28. CLONIDINE [Concomitant]
     Indication: HYPERTENSION
     Route: 048
     Dates: start: 20121015, end: 20121015
  29. LISINOPRIL [Concomitant]
     Indication: HYPERTENSION
     Route: 048
     Dates: start: 20121016, end: 20121022
  30. LISINOPRIL [Concomitant]
     Route: 048
     Dates: start: 20121023, end: 20121104
  31. LISINOPRIL [Concomitant]
     Route: 048
     Dates: start: 20121105
  32. ASPIRIN [Concomitant]
     Route: 048
     Dates: start: 20120815, end: 20121026
  33. ZYCLARA [Concomitant]
     Indication: SKIN PAPILLOMA
     Route: 061
     Dates: start: 20121210, end: 20121210
  34. VITAMIN B6 [Concomitant]
     Route: 065

REACTIONS (1)
  - Angina pectoris [Recovering/Resolving]
